FAERS Safety Report 11413739 (Version 2)
Quarter: 2015Q3

REPORT INFORMATION
  Report Type: Spontaneous
  Country: FR (occurrence: FR)
  Receive Date: 20150824
  Receipt Date: 20150828
  Transmission Date: 20151125
  Serious: Yes (Death, Hospitalization)
  Sender: FDA-Public Use
  Company Number: FR-PFIZER INC-2015278356

PATIENT
  Age: 84 Year
  Sex: Male

DRUGS (5)
  1. PREVISCAN /00789001/ [Suspect]
     Active Substance: FLUINDIONE
     Dosage: 600 MG, SINGLE
     Route: 048
     Dates: start: 20150708, end: 20150708
  2. CORDARONE [Suspect]
     Active Substance: AMIODARONE HYDROCHLORIDE
     Dosage: 2 MG, SINGLE
     Route: 048
     Dates: start: 20150708, end: 20150708
  3. AMLOR [Suspect]
     Active Substance: AMLODIPINE BESYLATE
     Dosage: 30 MG, SINGLE
     Route: 048
     Dates: start: 20150708, end: 20150708
  4. BISOPROLOL FUMARATE. [Suspect]
     Active Substance: BISOPROLOL FUMARATE
     Dosage: 75 MG, SINGLE
     Route: 048
     Dates: start: 20150708, end: 20150708
  5. CRESTOR [Suspect]
     Active Substance: ROSUVASTATIN CALCIUM
     Dosage: 400 MG, SINGLE
     Route: 048
     Dates: start: 20150708, end: 20150708

REACTIONS (5)
  - Completed suicide [Fatal]
  - Myoclonus [Recovered/Resolved]
  - Bradycardia [Fatal]
  - Hypotension [Fatal]
  - Circulatory collapse [Fatal]

NARRATIVE: CASE EVENT DATE: 20150709
